FAERS Safety Report 14008414 (Version 1)
Quarter: 2017Q3

REPORT INFORMATION
  Report Type: Spontaneous
  Country: US (occurrence: US)
  Receive Date: 20170925
  Receipt Date: 20170925
  Transmission Date: 20171128
  Serious: Yes (Death)
  Sender: FDA-Public Use
  Company Number: PHEH2017US030711

PATIENT
  Age: 58 Year
  Sex: Female

DRUGS (1)
  1. TYKERB [Suspect]
     Active Substance: LAPATINIB DITOSYLATE
     Indication: BREAST CANCER FEMALE
     Dosage: 5 DF (1250 MG), QD
     Route: 048
     Dates: start: 20170810

REACTIONS (2)
  - Malignant neoplasm progression [Fatal]
  - Breast cancer female [Fatal]

NARRATIVE: CASE EVENT DATE: 20170826
